FAERS Safety Report 25664524 (Version 2)
Quarter: 2025Q4

REPORT INFORMATION
  Report Type: Report from Study
  Country: US (occurrence: US)
  Receive Date: 20250811
  Receipt Date: 20251019
  Transmission Date: 20260117
  Serious: Yes (Other)
  Sender: ABBVIE
  Company Number: US-ABBVIE-6406256

PATIENT
  Age: 42 Year
  Sex: Male

DRUGS (2)
  1. SKYRIZI [Suspect]
     Active Substance: RISANKIZUMAB-RZAA
     Indication: Psoriatic arthropathy
     Dosage: TIME INTERVAL: TOTAL: STRENGTH:150MG/ML
     Route: 058
     Dates: start: 20250713, end: 20250713
  2. SKYRIZI [Suspect]
     Active Substance: RISANKIZUMAB-RZAA
     Dosage: TIME INTERVAL: TOTAL: STRENGTH:150MG/ML AT WEEK 4
     Route: 058
     Dates: start: 20250824, end: 20250824

REACTIONS (1)
  - Testicular torsion [Unknown]

NARRATIVE: CASE EVENT DATE: 20250701
